FAERS Safety Report 25341239 (Version 1)
Quarter: 2025Q2

REPORT INFORMATION
  Report Type: Spontaneous
  Country: US (occurrence: None)
  Receive Date: 20250521
  Receipt Date: 20250521
  Transmission Date: 20250716
  Serious: Yes (Hospitalization)
  Sender: FDA-CTU
  Company Number: None

PATIENT
  Age: 50 Year
  Sex: Male
  Weight: 106.1 kg

DRUGS (1)
  1. RADIUM RA-223 DICHLORIDE [Suspect]
     Active Substance: RADIUM RA-223 DICHLORIDE

REACTIONS (3)
  - Urinary tract infection pseudomonal [None]
  - Device dislocation [None]
  - Hydronephrosis [None]

NARRATIVE: CASE EVENT DATE: 20240521
